FAERS Safety Report 10435415 (Version 3)
Quarter: 2014Q4

REPORT INFORMATION
  Report Type: Spontaneous
  Country: AU (occurrence: AU)
  Receive Date: 20140908
  Receipt Date: 20141010
  Transmission Date: 20150528
  Serious: Yes (Death, Other)
  Sender: FDA-Public Use
  Company Number: AU-ROCHE-1459212

PATIENT
  Sex: Male

DRUGS (1)
  1. RANIBIZUMAB [Suspect]
     Active Substance: RANIBIZUMAB
     Indication: AGE-RELATED MACULAR DEGENERATION
     Dosage: 4/52 EXTENDED
     Route: 050
     Dates: start: 20081217

REACTIONS (3)
  - General physical health deterioration [Unknown]
  - Malaise [Unknown]
  - Pulmonary oedema [Fatal]
